FAERS Safety Report 9908088 (Version 1)
Quarter: 2014Q1

REPORT INFORMATION
  Report Type: Spontaneous
  Country: US (occurrence: None)
  Receive Date: 20140212
  Receipt Date: 20140212
  Transmission Date: 20141002
  Serious: Yes (Other)
  Sender: FDA-Public Use
  Company Number: None

PATIENT
  Age: 63 Year
  Sex: Female
  Weight: 63.05 kg

DRUGS (1)
  1. HYDROCODONE-CHLORPHENIRAM SUSP [Suspect]
     Indication: COUGH
     Dosage: 1 TEASPOON, BY MOUTH
     Dates: start: 20140114, end: 20140115

REACTIONS (7)
  - Dizziness [None]
  - Nausea [None]
  - Hyperhidrosis [None]
  - Arrhythmia [None]
  - Hypoaesthesia [None]
  - Muscle spasms [None]
  - Diarrhoea [None]
